FAERS Safety Report 22342670 (Version 3)
Quarter: 2024Q4

REPORT INFORMATION
  Report Type: Other
  Country: GT (occurrence: GT)
  Receive Date: 20230519
  Receipt Date: 20241014
  Transmission Date: 20250114
  Serious: Yes (Hospitalization, Other)
  Sender: TOLMAR
  Company Number: GT-TOLMAR, INC.-23GT040514

PATIENT
  Age: 76 Year
  Sex: Male

DRUGS (4)
  1. ELIGARD [Suspect]
     Active Substance: LEUPROLIDE ACETATE
     Indication: Prostate cancer
     Dosage: 45 MILLIGRAM, Q 6 MONTH
     Route: 058
     Dates: start: 20230224
  2. ELIGARD [Suspect]
     Active Substance: LEUPROLIDE ACETATE
     Dosage: 45 MILLIGRAM, Q 6 MONTH
     Route: 058
     Dates: start: 20230327
  3. ELIGARD [Suspect]
     Active Substance: LEUPROLIDE ACETATE
     Dosage: 45 MILLIGRAM, Q 6 MONTH
     Route: 058
     Dates: start: 20240925
  4. DICLOFENAC SODIUM\PHENAZOPYRIDINE HYDROCHLORIDE [Suspect]
     Active Substance: DICLOFENAC SODIUM\PHENAZOPYRIDINE HYDROCHLORIDE
     Indication: Prostate cancer
     Dosage: UNK

REACTIONS (4)
  - Prostatic specific antigen increased [Recovering/Resolving]
  - Injection site discomfort [Not Recovered/Not Resolved]
  - Injection site swelling [Recovered/Resolved]
  - Breast pain [Unknown]

NARRATIVE: CASE EVENT DATE: 20230401
